FAERS Safety Report 10164684 (Version 1)
Quarter: 2014Q2

REPORT INFORMATION
  Report Type: Spontaneous
  Country: US (occurrence: US)
  Receive Date: 20140510
  Receipt Date: 20140510
  Transmission Date: 20141212
  Serious: Yes (Other)
  Sender: FDA-Public Use
  Company Number: US-BRISTOL-MYERS SQUIBB COMPANY-20385241

PATIENT
  Age: 61 Year
  Sex: Male

DRUGS (8)
  1. BYETTA PEN DISPOSABLE [Suspect]
     Dosage: RESTARTED EXENATIDE 5 MCG PEN IN NOV-2013 TWICE DAILY AND TITRATED 10MCG EXENATIDE BID JAN14
  2. METFORMIN HCL [Suspect]
     Dosage: TAKES TWO 1500 MG METFORMIN HCL IN THE MORNING AND ONE 500MG METFORMIN HCL IN THE EVENING.
  3. GLIMEPIRIDE [Suspect]
  4. PLAVIX [Concomitant]
     Dosage: EVERY MORNING
  5. ASPIRIN [Concomitant]
  6. NORVASC [Concomitant]
  7. FLOMAX [Concomitant]
     Dosage: 1 DF - 0.5 UNITS NOS
  8. CHLORTHALIDONE [Concomitant]

REACTIONS (4)
  - Visual acuity reduced [Unknown]
  - Blood glucose decreased [Unknown]
  - Injection site bruising [Not Recovered/Not Resolved]
  - Product quality issue [Unknown]
